FAERS Safety Report 8899001 (Version 1)
Quarter: 2012Q4

REPORT INFORMATION
  Report Type: 
  Country: US (occurrence: US)
  Receive Date: 20121108
  Receipt Date: 20121108
  Transmission Date: 20130627
  Serious: No
  Sender: FDA-Public Use
  Company Number: US-AMGEN-USASP2012027721

PATIENT
  Age: 56 Year
  Sex: Female
  Weight: 53.52 kg

DRUGS (9)
  1. ENBREL [Suspect]
     Indication: RHEUMATOID ARTHRITIS
     Dosage: 50 mg, qwk
     Route: 058
  2. METHOTREXATE [Concomitant]
     Route: 048
  3. LEUCOVORIN /00566701/ [Concomitant]
     Dosage: 200 mg, UNK
  4. ATENOLOL [Concomitant]
     Dosage: 25 mg, UNK
  5. PREDNISONE [Concomitant]
     Route: 048
  6. PREDNISOLONE [Concomitant]
     Route: 048
  7. IBUPROFEN [Concomitant]
     Route: 048
  8. CALCIUM 600 [Concomitant]
     Route: 048
  9. VITAMIN C                          /00008001/ [Concomitant]
     Dosage: 100 mg, UNK
     Route: 048

REACTIONS (2)
  - Local swelling [Unknown]
  - Oedema peripheral [Unknown]
